FAERS Safety Report 17933748 (Version 1)
Quarter: 2020Q2

REPORT INFORMATION
  Report Type: Spontaneous
  Country: US (occurrence: US)
  Receive Date: 20200624
  Receipt Date: 20200624
  Transmission Date: 20200714
  Serious: Yes (Other)
  Sender: FDA-Public Use
  Company Number: US-GLENMARK PHARMACEUTICALS-2020GMK048220

PATIENT

DRUGS (2)
  1. NORETHINDRONE ACETATE AND ETHINYL ESTRADIOL TABLETS USP, 1MG/0.02 MG [Suspect]
     Active Substance: ETHINYL ESTRADIOL\NORETHINDRONE ACETATE
     Indication: CONTRACEPTION
     Dosage: 1 DOSAGE FORM, OD (START DATE: PROBABLY YEAR AND A HALF AGO; UNSPECIFIED)
     Route: 048
  2. NORETHINDRONE ACETATE AND ETHINYL ESTRADIOL TABLETS USP, 1MG/0.02 MG [Suspect]
     Active Substance: ETHINYL ESTRADIOL\NORETHINDRONE ACETATE
     Dosage: 1 DOSAGE FORM, OD
     Route: 048

REACTIONS (3)
  - Product quality issue [Unknown]
  - Staphylococcal infection [Not Recovered/Not Resolved]
  - Acne cystic [Not Recovered/Not Resolved]

NARRATIVE: CASE EVENT DATE: 2020
